FAERS Safety Report 15328482 (Version 1)
Quarter: 2018Q3

REPORT INFORMATION
  Report Type: Report from Study
  Country: None (occurrence: US)
  Receive Date: 20180829
  Receipt Date: 20180829
  Transmission Date: 20181010
  Serious: Yes (Hospitalization)
  Sender: FDA-Public Use
  Company Number: US-ABBVIE-18K-163-2428263-00

PATIENT
  Age: 67 Year
  Sex: Male
  Weight: 48.12 kg

DRUGS (4)
  1. TESTOSTERONE. [Concomitant]
     Active Substance: TESTOSTERONE
     Indication: BLOOD TESTOSTERONE DECREASED
  2. VITAMIN B12 [Concomitant]
     Active Substance: CYANOCOBALAMIN
     Indication: ASTHENIA
  3. HUMIRA [Suspect]
     Active Substance: ADALIMUMAB
     Indication: CROHN^S DISEASE
     Route: 058
  4. HUMIRA [Suspect]
     Active Substance: ADALIMUMAB
     Route: 058

REACTIONS (6)
  - Ligament rupture [Recovered/Resolved]
  - Osteoarthritis [Recovered/Resolved]
  - Muscular weakness [Recovering/Resolving]
  - Joint range of motion decreased [Recovering/Resolving]
  - Weight decreased [Recovering/Resolving]
  - Muscle rupture [Recovered/Resolved]

NARRATIVE: CASE EVENT DATE: 2014
